FAERS Safety Report 6959358-1 (Version None)
Quarter: 2010Q3

REPORT INFORMATION
  Report Type: 
  Country: None (occurrence: None)
  Receive Date: 20100831
  Receipt Date: 20100831
  Transmission Date: 20110219
  Serious: No
  Sender: FDA-Public Use
  Company Number: None

PATIENT
  Age: 34 Year
  Sex: Female
  Weight: 56.6996 kg

DRUGS (1)
  1. BOTOX [Suspect]
     Indication: SKIN WRINKLING
     Dosage: JUST ONCE
     Dates: start: 20100408, end: 20100408

REACTIONS (3)
  - ACNE [None]
  - DEPRESSION [None]
  - INJECTION SITE REACTION [None]
